FAERS Safety Report 19420300 (Version 2)
Quarter: 2021Q3

REPORT INFORMATION
  Report Type: Spontaneous
  Country: US (occurrence: US)
  Receive Date: 20210616
  Receipt Date: 20210723
  Transmission Date: 20211014
  Serious: No
  Sender: FDA-Public Use
  Company Number: US-GLAXOSMITHKLINE-US2021124471

PATIENT
  Age: 29 Year
  Sex: Male

DRUGS (1)
  1. FLONASE ALLERGY RELIEF [Suspect]
     Active Substance: FLUTICASONE PROPIONATE
     Indication: PRODUCT USED FOR UNKNOWN INDICATION
     Dosage: 2 PUFF(S)(1 SPRAY IN EACH NOSTRIL)
     Dates: start: 20210407, end: 20210505

REACTIONS (10)
  - Therapy cessation [Unknown]
  - Nasal disorder [Not Recovered/Not Resolved]
  - Nasal dryness [Not Recovered/Not Resolved]
  - Rhinalgia [Not Recovered/Not Resolved]
  - Incorrect dose administered [Unknown]
  - Chemical burn [Not Recovered/Not Resolved]
  - Intranasal hypoaesthesia [Not Recovered/Not Resolved]
  - Paraesthesia [Not Recovered/Not Resolved]
  - Nasal discomfort [Not Recovered/Not Resolved]
  - Nasal obstruction [Not Recovered/Not Resolved]

NARRATIVE: CASE EVENT DATE: 202105
